FAERS Safety Report 14097102 (Version 2)
Quarter: 2018Q1

REPORT INFORMATION
  Report Type: Spontaneous
  Country: US (occurrence: US)
  Receive Date: 20171017
  Receipt Date: 20180115
  Transmission Date: 20180508
  Serious: No
  Sender: FDA-Public Use
  Company Number: US-PFIZER INC-2017448573

PATIENT
  Age: 44 Year
  Sex: Male
  Weight: 94.35 kg

DRUGS (1)
  1. XELJANZ XR [Suspect]
     Active Substance: TOFACITINIB CITRATE
     Dosage: 11 MG, UNK

REACTIONS (3)
  - Nasopharyngitis [Unknown]
  - Disease recurrence [Unknown]
  - Heart rate increased [Unknown]
